FAERS Safety Report 8405832-0 (Version None)
Quarter: 2012Q2

REPORT INFORMATION
  Report Type: 
  Country: None (occurrence: None)
  Receive Date: 20120604
  Receipt Date: 20120529
  Transmission Date: 20120825
  Serious: No
  Sender: FDA-Public Use
  Company Number: US-PFIZER INC-2012114167

PATIENT
  Sex: Female

DRUGS (8)
  1. CEPHALOSPORIN [Suspect]
     Dosage: UNK
  2. POTASSIUM PENICILLIN G [Suspect]
     Dosage: UNK
  3. POLYMYXIN B SULFATE [Suspect]
     Dosage: UNK
  4. POVIDONE-IODINE (FORMULA 47) [Suspect]
     Dosage: UNK
  5. ASPIRIN [Suspect]
     Dosage: UNK
  6. PHENYTOIN [Suspect]
     Dosage: UNK
  7. BACITRACIN [Suspect]
     Dosage: UNK
  8. CODEINE [Suspect]
     Dosage: UNK

REACTIONS (1)
  - DRUG HYPERSENSITIVITY [None]
